FAERS Safety Report 22054337 (Version 1)
Quarter: 2023Q1

REPORT INFORMATION
  Report Type: Spontaneous
  Country: US (occurrence: US)
  Receive Date: 20230302
  Receipt Date: 20230302
  Transmission Date: 20230418
  Serious: No
  Sender: FDA-Public Use
  Company Number: US-NOVOPROD-1005850

PATIENT

DRUGS (1)
  1. SAXENDA [Suspect]
     Active Substance: LIRAGLUTIDE
     Indication: Product used for unknown indication
     Route: 058

REACTIONS (6)
  - Chills [Unknown]
  - Vision blurred [Unknown]
  - Nausea [Unknown]
  - Blood glucose decreased [Unknown]
  - Hyperhidrosis [Unknown]
  - Emotional disorder [Unknown]

NARRATIVE: CASE EVENT DATE: 20221126
